FAERS Safety Report 5406271-7 (Version None)
Quarter: 2007Q3

REPORT INFORMATION
  Report Type: 
  Country: None (occurrence: None)
  Receive Date: 20070806
  Receipt Date: 20070726
  Transmission Date: 20080115
  Serious: Yes (Other)
  Sender: FDA-Public Use
  Company Number: HQWYE240827JUL07

PATIENT
  Sex: Male
  Weight: 93.52 kg

DRUGS (8)
  1. TORISEL [Suspect]
     Indication: RENAL CELL CARCINOMA STAGE IV
     Route: 042
     Dates: start: 20070718, end: 20070718
  2. TORISEL [Suspect]
     Route: 042
     Dates: start: 20070725, end: 20070725
  3. MELATONIN [Concomitant]
     Indication: INSOMNIA
  4. CITALOPRAM HYDROBROMIDE [Concomitant]
     Indication: DEPRESSION
  5. FELODIPINE [Concomitant]
  6. VITAMIN B6 [Concomitant]
  7. HYDRALAZINE HCL [Concomitant]
     Indication: HYPERTENSION
  8. RANITIDINE [Concomitant]
     Indication: GASTROOESOPHAGEAL REFLUX DISEASE

REACTIONS (2)
  - ANAPHYLACTIC REACTION [None]
  - ATRIAL FIBRILLATION [None]
